FAERS Safety Report 23392588 (Version 1)
Quarter: 2024Q1

REPORT INFORMATION
  Report Type: Spontaneous
  Country: US (occurrence: US)
  Receive Date: 20240111
  Receipt Date: 20240111
  Transmission Date: 20240409
  Serious: Yes (Other)
  Sender: FDA-Public Use
  Company Number: US-ORGANON-O2312USA002781

PATIENT
  Age: 15 Year
  Sex: Female
  Weight: 73.93 kg

DRUGS (1)
  1. NEXPLANON [Suspect]
     Active Substance: ETONOGESTREL
     Indication: Contraception
     Dosage: 1 IMPLANT 68 MG IN LEFT ARM
     Route: 059
     Dates: start: 20231219

REACTIONS (3)
  - Device expulsion [Not Recovered/Not Resolved]
  - Implant site injury [Not Recovered/Not Resolved]
  - Product administered to patient of inappropriate age [Unknown]

NARRATIVE: CASE EVENT DATE: 20231219
